FAERS Safety Report 7935820-X (Version None)
Quarter: 2011Q4

REPORT INFORMATION
  Report Type: 
  Country: None (occurrence: None)
  Receive Date: 20111121
  Receipt Date: 20111109
  Transmission Date: 20120403
  Serious: Yes (Death, Hospitalization, Other)
  Sender: FDA-Public Use
  Company Number: GER/UKI/11/0020834

PATIENT
  Age: 92 Year
  Sex: Female
  Weight: 64 kg

DRUGS (15)
  1. DOUBLEBASE (HYDROMOL /00906601/) [Concomitant]
  2. LANSOPRAZOLE [Concomitant]
  3. PREDNISOLONE [Suspect]
     Indication: TEMPORAL ARTERITIS
     Dosage: 10 MG, REDUCING COURSE OF (40 MG TO 10 MG)
     Dates: start: 20110517
  4. INADINE (POVIDONE-IODINE) [Concomitant]
  5. METFORMIN HCL [Concomitant]
  6. FUROSEMIDE [Concomitant]
  7. DORZOLAMIDE HYDROCHLORIDE (DORZOLAMIDE) [Concomitant]
  8. CALCICHEW D3 (LEKOVIT CA) [Concomitant]
  9. FLUCLOXACILLIN (FLOCLOXACILLIN) [Concomitant]
  10. CLOPIDOGREL [Suspect]
     Indication: ATRIAL FIBRILLATION
     Dates: start: 20110505, end: 20110604
  11. CLOPIDOGREL [Suspect]
     Indication: CEREBROVASCULAR ACCIDENT PROPHYLAXIS
     Dates: start: 20110505, end: 20110604
  12. ALENDRONATE SODIUM [Concomitant]
  13. CANDESARTAN CILEXETIL [Concomitant]
  14. LATANOPROST [Concomitant]
  15. ZIPZOC (ZINC OXIDE) [Concomitant]

REACTIONS (9)
  - DUODENAL ULCER HAEMORRHAGE [None]
  - FALL [None]
  - DRUG INTERACTION [None]
  - RECTAL HAEMORRHAGE [None]
  - SYNCOPE [None]
  - VOMITING [None]
  - DIZZINESS [None]
  - SURGICAL FAILURE [None]
  - HAEMOGLOBIN DECREASED [None]
